FAERS Safety Report 15171253 (Version 3)
Quarter: 2019Q1

REPORT INFORMATION
  Report Type: Spontaneous
  Country: US (occurrence: US)
  Receive Date: 20180720
  Receipt Date: 20190121
  Transmission Date: 20190417
  Serious: No
  Sender: FDA-Public Use
  Company Number: US-CELGENEUS-USA-20180704934

PATIENT
  Age: 56 Year
  Sex: Female

DRUGS (1)
  1. OTEZLA [Suspect]
     Active Substance: APREMILAST
     Indication: PRODUCT USED FOR UNKNOWN INDICATION
     Dosage: 60 MILLIGRAM
     Route: 048
     Dates: start: 20180621

REACTIONS (4)
  - Nausea [Not Recovered/Not Resolved]
  - Headache [Not Recovered/Not Resolved]
  - Nail psoriasis [Unknown]
  - Nausea [Unknown]

NARRATIVE: CASE EVENT DATE: 20180621
